FAERS Safety Report 12503212 (Version 1)
Quarter: 2016Q2

REPORT INFORMATION
  Report Type: Spontaneous
  Country: US (occurrence: None)
  Receive Date: 20160627
  Receipt Date: 20160627
  Transmission Date: 20160815
  Serious: Yes (Disabling)
  Sender: FDA-Public Use
  Company Number: None

PATIENT
  Age: 38 Year
  Sex: Female
  Weight: 56.7 kg

DRUGS (4)
  1. VITAMIN D [Concomitant]
     Active Substance: CHOLECALCIFEROL
  2. MULTIVITAMINS [Concomitant]
     Active Substance: VITAMINS
  3. MAGNESIUM [Concomitant]
     Active Substance: MAGNESIUM
  4. GADAVIST [Suspect]
     Active Substance: GADOBUTROL
     Indication: NUCLEAR MAGNETIC RESONANCE IMAGING
     Route: 042
     Dates: start: 20151124, end: 20151124

REACTIONS (16)
  - Photosensitivity reaction [None]
  - Arthralgia [None]
  - Muscular weakness [None]
  - Muscle twitching [None]
  - Palpitations [None]
  - Hypoaesthesia [None]
  - Muscle spasms [None]
  - Burning sensation [None]
  - Hyperaesthesia [None]
  - Insomnia [None]
  - Paraesthesia [None]
  - Hyperacusis [None]
  - Rash [None]
  - Chest pain [None]
  - Pain in extremity [None]
  - Tremor [None]

NARRATIVE: CASE EVENT DATE: 20151124
